FAERS Safety Report 6113979-7 (Version None)
Quarter: 2009Q1

REPORT INFORMATION
  Report Type: 
  Country: None (occurrence: None)
  Receive Date: 20090312
  Receipt Date: 20081023
  Transmission Date: 20090719
  Serious: No
  Sender: FDA-Public Use
  Company Number: US-ABBOTT-08P-163-0483444-00

PATIENT
  Sex: Female

DRUGS (6)
  1. LUPRON DEPOT [Suspect]
     Indication: ENDOMETRIOSIS
     Route: 030
     Dates: start: 20050101, end: 20050101
  2. LUPRON DEPOT [Suspect]
     Route: 030
     Dates: start: 20030101, end: 20030101
  3. LUPRON DEPOT [Suspect]
     Route: 030
     Dates: start: 20080901
  4. LUPRON DEPOT-PED [Suspect]
     Indication: ENDOMETRIOSIS
     Route: 030
     Dates: start: 20080901, end: 20080901
  5. METFORMIN HCL [Concomitant]
     Indication: DRUG USE FOR UNKNOWN INDICATION
  6. METFORMIN HCL [Concomitant]

REACTIONS (2)
  - ENDOMETRIOSIS [None]
  - WRONG DRUG ADMINISTERED [None]
